FAERS Safety Report 20155320 (Version 1)
Quarter: 2021Q4

REPORT INFORMATION
  Report Type: Spontaneous
  Country: US (occurrence: None)
  Receive Date: 20211207
  Receipt Date: 20211207
  Transmission Date: 20220303
  Serious: Yes (Hospitalization)
  Sender: FDA-Public Use
  Company Number: US-ROCHE-2969123

PATIENT
  Age: 40 Year
  Sex: Male

DRUGS (1)
  1. OCREVUS [Suspect]
     Active Substance: OCRELIZUMAB
     Indication: Product used for unknown indication
     Route: 041
     Dates: start: 202010

REACTIONS (4)
  - Tremor [Unknown]
  - Movement disorder [Unknown]
  - Nephrolithiasis [Unknown]
  - Constipation [Unknown]

NARRATIVE: CASE EVENT DATE: 20211124
